FAERS Safety Report 20861389 (Version 1)
Quarter: 2022Q2

REPORT INFORMATION
  Report Type: Report from Study
  Country: US (occurrence: None)
  Receive Date: 20220523
  Receipt Date: 20220523
  Transmission Date: 20220721
  Serious: Yes (Hospitalization)
  Sender: FDA-Public Use
  Company Number: US-ROCHE-2967844

PATIENT
  Age: 47 Year
  Sex: Female
  Weight: 68 kg

DRUGS (25)
  1. TUCATINIB [Suspect]
     Active Substance: TUCATINIB
     Indication: Breast cancer metastatic
     Dosage: ON 08/NOV/2021, RECEIVED LAST DOSE OF PRIOR TO EVENT ONSET
     Route: 048
     Dates: start: 20210831
  2. ADO-TRASTUZUMAB EMTANSINE [Suspect]
     Active Substance: ADO-TRASTUZUMAB EMTANSINE
     Indication: Breast cancer metastatic
     Dosage: ON 04/NOV/2021, RECEIVED LAST DOSE PRIOR TO EVENT ONSET
     Route: 042
     Dates: start: 20210831
  3. MICRO-K [Concomitant]
     Active Substance: POTASSIUM CHLORIDE
  4. PHENERGAN [Concomitant]
     Active Substance: PROMETHAZINE HYDROCHLORIDE
     Dates: end: 20211108
  5. PROVENTIL [Concomitant]
     Active Substance: ALBUTEROL
  6. NORVASC [Concomitant]
     Active Substance: AMLODIPINE BESYLATE
     Dates: start: 20211108
  7. FIORICET [Concomitant]
     Active Substance: ACETAMINOPHEN\BUTALBITAL\CAFFEINE
     Dates: end: 20211107
  8. ESGIC [Concomitant]
     Active Substance: ACETAMINOPHEN\BUTALBITAL\CAFFEINE
     Dates: end: 20211107
  9. CALCIUM CARBONATE;VITAMIN D3 [Concomitant]
     Dates: end: 20211108
  10. FLEXERIL [Concomitant]
     Active Substance: CYCLOBENZAPRINE HYDROCHLORIDE
  11. COLACE [Concomitant]
     Active Substance: DOCUSATE SODIUM
     Dates: end: 20211108
  12. EPIPEN [Concomitant]
     Active Substance: EPINEPHRINE
  13. LASIX [Concomitant]
     Active Substance: FUROSEMIDE
  14. NEURONTIN [Concomitant]
     Active Substance: GABAPENTIN
  15. FEMARA [Concomitant]
     Active Substance: LETROZOLE
  16. DOLOPHINE [Concomitant]
     Active Substance: METHADONE HYDROCHLORIDE
  17. ZOFRAN [Concomitant]
     Active Substance: ONDANSETRON HYDROCHLORIDE
     Dosage: MOST RECENT DOSE OF ZOFRAN ON  07/NOV/2021.
  18. OXYCONTIN [Concomitant]
     Active Substance: OXYCODONE HYDROCHLORIDE
  19. PERCOCET [Concomitant]
     Active Substance: ACETAMINOPHEN\OXYCODONE HYDROCHLORIDE
  20. PROTONIX [Concomitant]
     Active Substance: PANTOPRAZOLE SODIUM
  21. DELTASONE [Concomitant]
     Active Substance: PREDNISONE
  22. NARCAN [Concomitant]
     Active Substance: NALOXONE HYDROCHLORIDE
  23. PROCHLORPERAZINE EDISYLATE [Concomitant]
     Active Substance: PROCHLORPERAZINE EDISYLATE
     Dosage: MOST RECENT DOSE OF COMPAZINE ON 07/NOV/2021.
     Dates: end: 20211107
  24. DESYREL [Concomitant]
     Active Substance: TRAZODONE HYDROCHLORIDE
     Dates: end: 20211107
  25. ONDANSETRON [Concomitant]
     Active Substance: ONDANSETRON
     Dates: end: 20211107

REACTIONS (2)
  - Dehydration [Recovered/Resolved]
  - Fatigue [Recovered/Resolved]

NARRATIVE: CASE EVENT DATE: 20211108
